FAERS Safety Report 8543775-2 (Version None)
Quarter: 2012Q3

REPORT INFORMATION
  Report Type: 
  Country: None (occurrence: None)
  Receive Date: 20120727
  Receipt Date: 20120719
  Transmission Date: 20120928
  Serious: Yes (Other)
  Sender: FDA-Public Use
  Company Number: CA-SANOFI-AVENTIS-2012SA051682

PATIENT
  Age: 38 Year
  Sex: Male
  Weight: 81 kg

DRUGS (3)
  1. PERCOCET [Concomitant]
  2. EXTRA STRENGTH TYLENOL [Concomitant]
  3. LOVENOX [Suspect]
     Route: 058

REACTIONS (8)
  - INFLUENZA LIKE ILLNESS [None]
  - SYNCOPE [None]
  - OEDEMA PERIPHERAL [None]
  - EPISTAXIS [None]
  - PYREXIA [None]
  - CONTUSION [None]
  - MUSCLE INJURY [None]
  - DIZZINESS [None]
